FAERS Safety Report 11133172 (Version 17)
Quarter: 2018Q1

REPORT INFORMATION
  Report Type: Report from Study
  Country: FR (occurrence: FR)
  Receive Date: 20150522
  Receipt Date: 20180316
  Transmission Date: 20180508
  Serious: Yes (Hospitalization, Other)
  Sender: FDA-Public Use
  Company Number: FR-AEGERION PHARMACEUTICAL INC.-AEGR001398

PATIENT

DRUGS (42)
  1. LEVEMIR [Concomitant]
     Active Substance: INSULIN DETEMIR
     Dosage: MORNING 25 EVENING 35
  2. UMULINE RAPIDE [Concomitant]
     Active Substance: INSULIN HUMAN
     Dosage: 7 UI/KG, QD
     Dates: start: 20141228
  3. CELLCEPT [Concomitant]
     Active Substance: MYCOPHENOLATE MOFETIL\MYCOPHENOLATE MOFETIL HYDROCHLORIDE
     Dosage: 1000  MG, BID
     Dates: start: 20170123
  4. ADVAGRAF [Concomitant]
     Active Substance: TACROLIMUS
     Dosage: 3 MG, QD
  5. RITUXIMAB. [Concomitant]
     Active Substance: RITUXIMAB
     Indication: PRODUCT USED FOR UNKNOWN INDICATION
     Dosage: 7 UI/KG, QD
     Dates: start: 2015
  6. RITUXIMAB. [Concomitant]
     Active Substance: RITUXIMAB
     Dosage: 19 UI/KG, QD
  7. EVEROLIMUS. [Concomitant]
     Active Substance: EVEROLIMUS
     Indication: PROPHYLAXIS AGAINST TRANSPLANT REJECTION
     Dosage: .75 MG, BID
     Dates: start: 201701
  8. VALSARTAN. [Concomitant]
     Active Substance: VALSARTAN
     Indication: PRODUCT USED FOR UNKNOWN INDICATION
     Dosage: 40 MG, UNK
  9. HUMAN IMMUNOGLOBULIN [Concomitant]
     Active Substance: HUMAN IMMUNOGLOBULIN G
     Indication: IMMUNOGLOBULINS DECREASED
     Dosage: 0.5 G/KG
     Dates: start: 201711
  10. ADVAGRAF [Concomitant]
     Active Substance: TACROLIMUS
     Dosage: 3 MG, QD
     Dates: start: 20170123
  11. METRELEPTIN [Suspect]
     Active Substance: METRELEPTIN
     Dosage: 0.8 ML, QD
     Route: 058
     Dates: start: 20140212
  12. METRELEPTIN [Suspect]
     Active Substance: METRELEPTIN
     Dosage: 2 ML, QD
     Route: 058
     Dates: start: 201412, end: 20150102
  13. LEVEMIR [Concomitant]
     Active Substance: INSULIN DETEMIR
     Indication: DIABETES MELLITUS
     Dosage: 60 IUID, BID
     Route: 058
     Dates: start: 201401
  14. LEVEMIR [Concomitant]
     Active Substance: INSULIN DETEMIR
     Dosage: 80 IU ID, BID
  15. METRELEPTIN [Suspect]
     Active Substance: METRELEPTIN
     Indication: LIPODYSTROPHY ACQUIRED
     Dosage: 0.4 ML, QD
     Route: 058
     Dates: start: 20140109
  16. METRELEPTIN [Suspect]
     Active Substance: METRELEPTIN
     Dosage: 1.4 ML, QD
     Route: 058
     Dates: start: 20141010
  17. UMULINE RAPIDE [Concomitant]
     Active Substance: INSULIN HUMAN
     Dosage: 3.5 U/KG,  QD
     Dates: start: 20131028
  18. UMULINE RAPIDE [Concomitant]
     Active Substance: INSULIN HUMAN
     Dosage: 5.6 U/KG, QD
     Route: 058
  19. UMULINE RAPIDE [Concomitant]
     Active Substance: INSULIN HUMAN
     Dosage: 2 U/KG, QD
     Dates: start: 20170713
  20. PREDNISONE. [Concomitant]
     Active Substance: PREDNISONE
     Indication: PROPHYLAXIS AGAINST TRANSPLANT REJECTION
     Dosage: 15 MG/QD
     Dates: start: 201701
  21. TAREG [Concomitant]
     Active Substance: VALSARTAN
     Indication: HYPERTENSION
     Dosage: 80 MG, QD
     Dates: start: 2016
  22. RITUXIMAB. [Concomitant]
     Active Substance: RITUXIMAB
     Dosage: 6.8 UI/KG, QD
     Dates: start: 2015
  23. ENALAPRIL [Concomitant]
     Active Substance: ENALAPRIL
     Indication: HYPERTENSION
     Dosage: 50 MG, QD
     Dates: start: 201401
  24. ROVALCYTE [Concomitant]
     Active Substance: VALGANCICLOVIR HYDROCHLORIDE
     Indication: PROPHYLAXIS AGAINST TRANSPLANT REJECTION
     Dosage: 450 MG IN THE MORNING
     Dates: start: 20170220, end: 20171201
  25. BACTRIM [Concomitant]
     Active Substance: SULFAMETHOXAZOLE\TRIMETHOPRIM
     Indication: PROPHYLAXIS AGAINST TRANSPLANT REJECTION
     Dosage: 480 MG, QD
     Dates: end: 20171201
  26. UMULINE [Concomitant]
     Active Substance: INSULIN HUMAN
     Dosage: 50 IU/D, BID
  27. UMULINE RAPIDE [Concomitant]
     Active Substance: INSULIN HUMAN
     Indication: ACQUIRED LIPOATROPHIC DIABETES
     Dosage: 7 UI/KG, QD
     Dates: start: 20150729
  28. ASPEGIC [Concomitant]
     Active Substance: ASPIRIN DL-LYSINE
     Indication: PROPHYLAXIS AGAINST TRANSPLANT REJECTION
     Dosage: 250 MG, QD
  29. ADVAGRAF [Concomitant]
     Active Substance: TACROLIMUS
     Indication: HEPATIC STEATOSIS
     Dosage: 4 MG/D
  30. UMULINE [Concomitant]
     Active Substance: INSULIN HUMAN
     Indication: DIABETES MELLITUS
     Dosage: 68 IUID, BID
     Dates: start: 20150108
  31. METRELEPTIN [Suspect]
     Active Substance: METRELEPTIN
     Dosage: 1.2 ML, QD
     Route: 058
     Dates: start: 20140514
  32. METFORMINE [Concomitant]
     Active Substance: METFORMIN HYDROCHLORIDE
     Indication: DIABETES MELLITUS
     Dosage: 700 MG, TID
     Dates: start: 201310
  33. INSULIN [Concomitant]
     Active Substance: INSULIN NOS
     Indication: DIABETES MELLITUS
     Dosage: 80 UNITS, QD
     Dates: start: 201209
  34. UMULINE RAPIDE [Concomitant]
     Active Substance: INSULIN HUMAN
     Dosage: 5 UI/KG, QD
     Dates: start: 20140529
  35. UMULINE RAPIDE [Concomitant]
     Active Substance: INSULIN HUMAN
     Dosage: 2 U KG, QD
     Route: 058
     Dates: start: 20140913
  36. PREDNISONE. [Concomitant]
     Active Substance: PREDNISONE
     Dosage: 12.5 MG, QD
  37. CELLCEPT [Concomitant]
     Active Substance: MYCOPHENOLATE MOFETIL\MYCOPHENOLATE MOFETIL HYDROCHLORIDE
     Indication: HEPATIC STEATOSIS
     Dosage: 500 MG, BID
     Dates: start: 201702
  38. LANSOPRAZOLE. [Concomitant]
     Active Substance: LANSOPRAZOLE
     Indication: PROPHYLAXIS
     Dosage: 30 MG, QD
     Dates: start: 201701, end: 20171201
  39. METRELEPTIN [Suspect]
     Active Substance: METRELEPTIN
     Dosage: 0.07 MG/KG/D
     Route: 058
     Dates: start: 20170309
  40. METRELEPTIN [Suspect]
     Active Substance: METRELEPTIN
     Dosage: 0.18 MG/KG/D  (1 VIAL/D)
     Route: 058
     Dates: start: 20171110
  41. ASPEGIC [Concomitant]
     Active Substance: ASPIRIN DL-LYSINE
     Dosage: 100 MG, UNK
     Dates: start: 20170123
  42. CELLCEPT [Concomitant]
     Active Substance: MYCOPHENOLATE MOFETIL\MYCOPHENOLATE MOFETIL HYDROCHLORIDE
     Dosage: 500 MG,QD

REACTIONS (13)
  - Insulin resistance [Recovering/Resolving]
  - Hypertriglyceridaemia [Unknown]
  - Hepatic fibrosis [Unknown]
  - Injection site inflammation [Recovered/Resolved]
  - Weight increased [Unknown]
  - Hepatic steatosis [Not Recovered/Not Resolved]
  - Neutralising antibodies positive [Recovered/Resolved]
  - Transaminases increased [Unknown]
  - Hyperphagia [Unknown]
  - Hepatomegaly [Unknown]
  - Diabetes mellitus [Recovering/Resolving]
  - Condition aggravated [Unknown]
  - Drug ineffective [Unknown]

NARRATIVE: CASE EVENT DATE: 20150604
